FAERS Safety Report 5935186-0 (Version None)
Quarter: 2008Q4

REPORT INFORMATION
  Report Type: 
  Country: None (occurrence: None)
  Receive Date: 20081028
  Receipt Date: 20081015
  Transmission Date: 20090506
  Serious: Yes (Other)
  Sender: FDA-Public Use
  Company Number: 2008-00010

PATIENT
  Age: 30 Year
  Sex: Female
  Weight: 65.7716 kg

DRUGS (1)
  1. AGE SHIELD SUNBLOCK SPF7: AVOBENZSONE 3%, HOMOSALATE 5%, OCTISALATE5%, [Suspect]
     Indication: PROPHYLAXIS AGAINST SOLAR RADIATION
     Dosage: TOPICAL
     Route: 061
     Dates: start: 20081001, end: 20081002

REACTIONS (2)
  - BURNS SECOND DEGREE [None]
  - SKIN EXFOLIATION [None]
